FAERS Safety Report 5132123-6 (Version None)
Quarter: 2006Q4

REPORT INFORMATION
  Report Type: 
  Country: None (occurrence: None)
  Receive Date: 20061017
  Receipt Date: 20061006
  Transmission Date: 20070319
  Serious: Yes (Hospitalization)
  Sender: FDA-Public Use
  Company Number: 2005P1000421

PATIENT
  Age: 77 Year
  Sex: Male
  Weight: 84 kg

DRUGS (7)
  1. RETEPLASE             (RETEPLASE) [Suspect]
     Indication: ACUTE MYOCARDIAL INFARCTION
     Dosage: IV
     Route: 042
     Dates: start: 20050325
  2. ABCIXIMAB           (ABCIXIMAB) [Suspect]
     Indication: ACUTE MYOCARDIAL INFARCTION
     Dosage: IV
     Route: 042
     Dates: start: 20050325
  3. ASPIRIN [Concomitant]
  4. BISOPROLOL FUMARATE [Concomitant]
  5. NPH INSULIN [Concomitant]
  6. CILAZAPRIL [Concomitant]
  7. SIMVASTATIN [Concomitant]

REACTIONS (1)
  - CORONARY ARTERY STENOSIS [None]
